FAERS Safety Report 14908398 (Version 3)
Quarter: 2018Q3

REPORT INFORMATION
  Report Type: Report from Study
  Country: DE (occurrence: DE)
  Receive Date: 20180517
  Receipt Date: 20180731
  Transmission Date: 20181010
  Serious: Yes (Hospitalization, Other)
  Sender: FDA-Public Use
  Company Number: PHHY2018DE004628

PATIENT
  Sex: Female
  Weight: 104 kg

DRUGS (6)
  1. METOPROLOLSUCCINAT 1A FARMA [Concomitant]
     Indication: PROPHYLAXIS
     Dosage: 95 MG, QD
     Route: 048
     Dates: start: 20170518
  2. SIMVA ARISTO [Concomitant]
     Indication: PROPHYLAXIS
     Dosage: 20 MG, QD
     Route: 048
     Dates: start: 20170518
  3. TORASEMID?1A PHARMA [Concomitant]
     Active Substance: TORSEMIDE
     Indication: DIURETIC THERAPY
     Dosage: 10 MG, QD
     Route: 048
     Dates: start: 20170518
  4. ELIQUIS [Concomitant]
     Active Substance: APIXABAN
     Indication: PROPHYLAXIS
     Dosage: 10 MG, QD
     Route: 048
     Dates: start: 20170518
  5. PANTOPRAZOLE [Concomitant]
     Active Substance: PANTOPRAZOLE
     Indication: PROPHYLAXIS
     Dosage: 80 MG, QD
     Route: 048
     Dates: start: 20170518
  6. VALSARTAN 1 A PHARMA [Suspect]
     Active Substance: VALSARTAN
     Indication: CARDIAC FAILURE CHRONIC
     Dosage: 1 DF, QD
     Route: 048
     Dates: start: 2013

REACTIONS (14)
  - Atrial fibrillation [Unknown]
  - Atrial flutter [Unknown]
  - Urge incontinence [Unknown]
  - Weight increased [Not Recovered/Not Resolved]
  - Hypoacusis [Not Recovered/Not Resolved]
  - Syncope [Recovering/Resolving]
  - Speech disorder [Not Recovered/Not Resolved]
  - Blood pressure diastolic increased [Unknown]
  - Loss of consciousness [Recovering/Resolving]
  - Cough [Not Recovered/Not Resolved]
  - Pain [Unknown]
  - Transient ischaemic attack [Recovering/Resolving]
  - Back pain [Not Recovered/Not Resolved]
  - Nocturia [Unknown]

NARRATIVE: CASE EVENT DATE: 2013
